FAERS Safety Report 5955428-5 (Version None)
Quarter: 2008Q4

REPORT INFORMATION
  Report Type: 
  Country: None (occurrence: None)
  Receive Date: 20081113
  Receipt Date: 20081113
  Transmission Date: 20090506
  Serious: No
  Sender: FDA-Public Use
  Company Number: None

PATIENT
  Age: 52 Year
  Sex: Male

DRUGS (1)
  1. VARENICLINE [Suspect]
     Dosage: PO
     Route: 048
     Dates: start: 20071120, end: 20080205

REACTIONS (3)
  - AGITATION [None]
  - CONFUSIONAL STATE [None]
  - DEPRESSION [None]
